FAERS Safety Report 19670281 (Version 1)
Quarter: 2021Q3

REPORT INFORMATION
  Report Type: Spontaneous
  Country: US (occurrence: US)
  Receive Date: 20210806
  Receipt Date: 20210806
  Transmission Date: 20211014
  Serious: No
  Sender: FDA-Public Use
  Company Number: US-SAOL THERAPEUTICS-2021SAO00216

PATIENT
  Age: 53 Year
  Sex: Male

DRUGS (2)
  1. LIORESAL [Suspect]
     Active Substance: BACLOFEN
     Indication: MUSCLE SPASTICITY
     Dosage: 800 ?G, \DAY
     Route: 037
     Dates: start: 20210615
  2. COMPOUNDED BACLOFEN [Suspect]
     Active Substance: BACLOFEN
     Indication: MUSCLE SPASTICITY
     Dosage: 800 ?G, \DAY
     Route: 037
     Dates: end: 20210615

REACTIONS (5)
  - Headache [Recovered/Resolved]
  - Overdose [Recovered/Resolved]
  - Fatigue [Recovered/Resolved]
  - Device programming error [Recovered/Resolved]
  - Muscle tightness [Recovered/Resolved]

NARRATIVE: CASE EVENT DATE: 20210615
